FAERS Safety Report 18506368 (Version 3)
Quarter: 2020Q4

REPORT INFORMATION
  Report Type: Report from Study
  Country: US (occurrence: US)
  Receive Date: 20201116
  Receipt Date: 20201228
  Transmission Date: 20210114
  Serious: Yes (Hospitalization, Other)
  Sender: FDA-Public Use
  Company Number: US-SHIRE-US202025822

PATIENT
  Age: 41 Year
  Sex: Female

DRUGS (12)
  1. TEDUGLUTIDE [Suspect]
     Active Substance: TEDUGLUTIDE
     Dosage: 4.6 MILLIGRAM, QD
     Route: 050
     Dates: start: 20200708
  2. TEDUGLUTIDE [Suspect]
     Active Substance: TEDUGLUTIDE
     Indication: SHORT-BOWEL SYNDROME
     Dosage: 4.6 MILLIGRAM, QD
     Route: 058
     Dates: start: 202007
  3. TEDUGLUTIDE [Suspect]
     Active Substance: TEDUGLUTIDE
     Dosage: 4.6 MILLIGRAM, QD
     Route: 050
     Dates: start: 20200708
  4. TEDUGLUTIDE [Suspect]
     Active Substance: TEDUGLUTIDE
     Dosage: 4.6 MILLIGRAM, QD
     Route: 058
     Dates: start: 20200709
  5. TEDUGLUTIDE [Suspect]
     Active Substance: TEDUGLUTIDE
     Dosage: 4.6 MILLIGRAM, QD
     Route: 058
     Dates: start: 20200709
  6. TEDUGLUTIDE [Suspect]
     Active Substance: TEDUGLUTIDE
     Dosage: 4.6 MILLIGRAM, QD
     Route: 050
     Dates: start: 20200708
  7. TEDUGLUTIDE [Suspect]
     Active Substance: TEDUGLUTIDE
     Dosage: 4.6 MILLIGRAM, QD
     Route: 050
     Dates: start: 20200708
  8. TEDUGLUTIDE [Suspect]
     Active Substance: TEDUGLUTIDE
     Dosage: 4.6 MILLIGRAM, QD
     Route: 058
     Dates: start: 20200709
  9. TEDUGLUTIDE [Suspect]
     Active Substance: TEDUGLUTIDE
     Dosage: 4.6 MILLIGRAM, QD
     Route: 058
     Dates: start: 20200709
  10. TEDUGLUTIDE [Suspect]
     Active Substance: TEDUGLUTIDE
     Indication: SHORT-BOWEL SYNDROME
     Dosage: 4.6 MILLIGRAM, QD
     Route: 058
     Dates: start: 202007
  11. TEDUGLUTIDE [Suspect]
     Active Substance: TEDUGLUTIDE
     Indication: SHORT-BOWEL SYNDROME
     Dosage: 4.6 MILLIGRAM, QD
     Route: 058
     Dates: start: 202007
  12. TEDUGLUTIDE [Suspect]
     Active Substance: TEDUGLUTIDE
     Indication: SHORT-BOWEL SYNDROME
     Dosage: 4.6 MILLIGRAM, QD
     Route: 058
     Dates: start: 202007

REACTIONS (14)
  - Abdominal infection [Unknown]
  - Pain in extremity [Unknown]
  - Abdominal pain [Recovered/Resolved]
  - Pain [Unknown]
  - Drug ineffective [Unknown]
  - Headache [Unknown]
  - Vascular device infection [Unknown]
  - Dyspepsia [Unknown]
  - Abdominal pain [Recovering/Resolving]
  - Migraine [Unknown]
  - Peripheral swelling [Unknown]
  - Pulmonary thrombosis [Unknown]
  - Stoma complication [Unknown]
  - Swelling [Unknown]

NARRATIVE: CASE EVENT DATE: 20201209
